FAERS Safety Report 19362535 (Version 1)
Quarter: 2021Q2

REPORT INFORMATION
  Report Type: Spontaneous
  Country: US (occurrence: US)
  Receive Date: 20210601
  Receipt Date: 20210601
  Transmission Date: 20210717
  Serious: Yes (Life-Threatening, Other)
  Sender: FDA-Public Use
  Company Number: US-SAGENT PHARMACEUTICALS-2021SAG001150

PATIENT
  Age: 59 Year
  Sex: Male

DRUGS (1)
  1. CAFFEINE CITRATE. [Suspect]
     Active Substance: CAFFEINE CITRATE
     Indication: SUICIDE ATTEMPT
     Dosage: HANDFUL OF 200 MG PILLS
     Route: 048

REACTIONS (10)
  - Cardiac arrest [Recovering/Resolving]
  - Atrial tachycardia [Recovering/Resolving]
  - Hypokalaemia [Unknown]
  - Urine potassium increased [Unknown]
  - Ventricular hypokinesia [Unknown]
  - Suicide attempt [Unknown]
  - Overdose [Unknown]
  - Ventricular tachycardia [Recovering/Resolving]
  - Ventricular fibrillation [Recovering/Resolving]
  - Metabolic acidosis [Unknown]
